FAERS Safety Report 5390571-3 (Version None)
Quarter: 2007Q3

REPORT INFORMATION
  Report Type: 
  Country: None (occurrence: None)
  Receive Date: 20070718
  Receipt Date: 20070423
  Transmission Date: 20080115
  Serious: No
  Sender: FDA-Public Use
  Company Number: US-KINGPHARMUSA00001-K200700521

PATIENT

DRUGS (2)
  1. LEVOXYL [Suspect]
     Indication: HYPOTHYROIDISM
     Dosage: 25 MCG, QD
     Route: 048
     Dates: start: 20070101, end: 20070423
  2. ALDACTONE [Concomitant]
     Indication: BLOOD PRESSURE
     Dosage: 25 MG, QD
     Route: 048

REACTIONS (3)
  - ERUCTATION [None]
  - HYPERCHLORHYDRIA [None]
  - ORAL PAIN [None]
